FAERS Safety Report 16285992 (Version 1)
Quarter: 2019Q2

REPORT INFORMATION
  Report Type: Spontaneous
  Country: US (occurrence: US)
  Receive Date: 20190508
  Receipt Date: 20190508
  Transmission Date: 20190711
  Serious: No
  Sender: FDA-Public Use
  Company Number: US-PFIZER INC-2017222553

PATIENT
  Age: 63 Year
  Sex: Female
  Weight: 90.26 kg

DRUGS (2)
  1. LYRICA [Suspect]
     Active Substance: PREGABALIN
     Indication: TYPE 2 DIABETES MELLITUS
     Dosage: UNK UNK, 2X/DAY
  2. LYRICA [Suspect]
     Active Substance: PREGABALIN
     Indication: DIABETIC NEUROPATHY
     Dosage: 75 MG, 4X/DAY [QID]
     Route: 048

REACTIONS (3)
  - Drug ineffective [Unknown]
  - Intentional product use issue [Not Recovered/Not Resolved]
  - Product use issue [Unknown]
